FAERS Safety Report 14274328 (Version 2)
Quarter: 2018Q1

REPORT INFORMATION
  Report Type: Spontaneous
  Country: DE (occurrence: DE)
  Receive Date: 20171212
  Receipt Date: 20180302
  Transmission Date: 20180508
  Serious: Yes (Other)
  Sender: FDA-Public Use
  Company Number: DE-BAYER-2017-234212

PATIENT
  Age: 37 Year
  Sex: Female

DRUGS (1)
  1. ACETYLSALICYLIC ACID({=100 MG) [Suspect]
     Active Substance: ASPIRIN
     Indication: PROPHYLAXIS
     Dosage: UNK

REACTIONS (6)
  - HELLP syndrome [None]
  - Placental insufficiency [None]
  - Maternal exposure during pregnancy [None]
  - Product use in unapproved indication [None]
  - Off label use [None]
  - Haemorrhage in pregnancy [None]
